FAERS Safety Report 25322009 (Version 1)
Quarter: 2025Q2

REPORT INFORMATION
  Report Type: Spontaneous
  Country: US (occurrence: US)
  Receive Date: 20250516
  Receipt Date: 20250516
  Transmission Date: 20250716
  Serious: No
  Sender: ROCHE
  Company Number: US-ROCHE-10000280277

PATIENT
  Sex: Male

DRUGS (1)
  1. VABYSMO [Suspect]
     Active Substance: FARICIMAB-SVOA
     Indication: Macular degeneration
     Dosage: LAST FARICIMAB INJECTION ON : 19-DEC-2024
     Route: 050

REACTIONS (2)
  - Eye inflammation [Recovered/Resolved]
  - Iritis [Unknown]
